FAERS Safety Report 4443464-X (Version None)
Quarter: 2004Q3

REPORT INFORMATION
  Report Type: 
  Country: None (occurrence: None)
  Receive Date: 20040901
  Receipt Date: 20040820
  Transmission Date: 20050211
  Serious: Yes (Life-Threatening, Hospitalization)
  Sender: FDA-Public Use
  Company Number: 2004UW13269

PATIENT
  Age: 46 Year
  Sex: Female
  Weight: 53.5244 kg

DRUGS (5)
  1. IRESSA [Suspect]
     Indication: LUNG NEOPLASM MALIGNANT
     Dosage: 250 MG QD PO
     Route: 048
     Dates: start: 20040501
  2. ATIVAN [Concomitant]
  3. VICODIN [Concomitant]
  4. IBUPROFEN [Concomitant]
  5. COUMADIN [Concomitant]

REACTIONS (4)
  - INTERNATIONAL NORMALISED RATIO INCREASED [None]
  - LOBAR PNEUMONIA [None]
  - PLEURITIC PAIN [None]
  - PULMONARY EMBOLISM [None]
